FAERS Safety Report 9750133 (Version 2)
Quarter: 2013Q4

REPORT INFORMATION
  Report Type: Spontaneous
  Country: US (occurrence: US)
  Receive Date: 20131212
  Receipt Date: 20131212
  Transmission Date: 20140711
  Serious: No
  Sender: FDA-Public Use
  Company Number: US-GILEAD-US-CVT-090615

PATIENT
  Age: 65 Year
  Sex: Male

DRUGS (11)
  1. RANEXA [Suspect]
     Indication: ANGINA PECTORIS
     Route: 048
     Dates: start: 20090826, end: 20090808
  2. RANEXA [Suspect]
     Route: 048
     Dates: start: 20090909, end: 20090909
  3. RANEXA [Suspect]
     Route: 048
     Dates: start: 20090910
  4. PLAVIX [Concomitant]
     Route: 048
  5. LIPITOR                            /01326101/ [Concomitant]
     Route: 048
  6. IRON SULFATE [Concomitant]
     Route: 048
  7. ASA [Concomitant]
  8. STOOL SOFTENER [Concomitant]
  9. DOXYLAMINE [Concomitant]
  10. BENEFIBER [Concomitant]
  11. MULTIVITAMIN [Concomitant]
     Route: 048

REACTIONS (2)
  - Chromaturia [Not Recovered/Not Resolved]
  - Paraesthesia [Recovered/Resolved]
